FAERS Safety Report 22030750 (Version 2)
Quarter: 2023Q1

REPORT INFORMATION
  Report Type: Spontaneous
  Country: IN (occurrence: IN)
  Receive Date: 20230223
  Receipt Date: 20230227
  Transmission Date: 20230418
  Serious: Yes (Other)
  Sender: FDA-Public Use
  Company Number: IN-PFIZER INC-PV202300033713

PATIENT
  Age: 73 Year
  Sex: Female

DRUGS (4)
  1. PALBOCICLIB [Suspect]
     Active Substance: PALBOCICLIB
     Indication: Breast cancer metastatic
     Dosage: 125 MG OD
     Dates: start: 20211025
  2. PALBOCICLIB [Suspect]
     Active Substance: PALBOCICLIB
     Indication: HER2 positive breast cancer
  3. FEMARA [Concomitant]
     Active Substance: LETROZOLE
  4. XGEVA [Concomitant]
     Active Substance: DENOSUMAB

REACTIONS (9)
  - Pneumonia [Unknown]
  - Pulmonary fibrosis [Unknown]
  - Pericardial effusion [Unknown]
  - Rib fracture [Unknown]
  - Fibroadenoma of breast [Unknown]
  - Neoplasm progression [Unknown]
  - Oedema peripheral [Unknown]
  - Osteopenia [Unknown]
  - Off label use [Unknown]
